FAERS Safety Report 5504303-9 (Version None)
Quarter: 2007Q4

REPORT INFORMATION
  Report Type: 
  Country: None (occurrence: None)
  Receive Date: 20071030
  Receipt Date: 20071019
  Transmission Date: 20080405
  Serious: Yes (Other)
  Sender: FDA-Public Use
  Company Number: TUK2007A00117

PATIENT
  Age: 72 Year
  Sex: Male

DRUGS (5)
  1. ACTOS [Suspect]
     Indication: DIABETES MELLITUS
     Dosage: 15 MG
     Dates: start: 20060127, end: 20060404
  2. ASPIRIN [Concomitant]
  3. INFLUENZA VIRUS (INFLUENZA VIRUS VACCINE POLYVALENT) [Concomitant]
  4. SILDENAFIL CITRATE [Concomitant]
  5. SIMVASTATIN [Concomitant]

REACTIONS (2)
  - EMOTIONAL DISTRESS [None]
  - GYNAECOMASTIA [None]
